FAERS Safety Report 9910175 (Version 2)
Quarter: 2014Q1

REPORT INFORMATION
  Report Type: Spontaneous
  Country: US (occurrence: None)
  Receive Date: 20140212
  Receipt Date: 20140212
  Transmission Date: 20141002
  Serious: Yes (Death, Congenital Anomaly)
  Sender: FDA-Public Use
  Company Number: 2014AP001191

PATIENT
  Age: 1 Day
  Sex: Male

DRUGS (2)
  1. PAROXETINE HCL [Suspect]
  2. LEXAPRO [Suspect]

REACTIONS (5)
  - Cleft lip [None]
  - Hydrocele [None]
  - Hernia [None]
  - Maternal drugs affecting foetus [None]
  - Foetal exposure during pregnancy [None]
